FAERS Safety Report 8898437 (Version 1)
Quarter: 2012Q4

REPORT INFORMATION
  Report Type: 
  Country: CH (occurrence: CH)
  Receive Date: 20121109
  Receipt Date: 20121109
  Transmission Date: 20130627
  Serious: Yes (Other)
  Sender: FDA-Public Use
  Company Number: CH-009507513-1211CHE002470

PATIENT
  Age: 1 Day
  Sex: Male

DRUGS (5)
  1. ESMERON [Suspect]
     Route: 064
  2. EPHEDRINE [Suspect]
     Route: 064
  3. PROPOFOL [Suspect]
     Route: 064
  4. SUPRANE [Suspect]
     Route: 064
  5. METHYLENE BLUE [Suspect]
     Route: 064

REACTIONS (3)
  - Low birth weight baby [Unknown]
  - Premature baby [Unknown]
  - Foetal exposure during pregnancy [Recovered/Resolved]
